FAERS Safety Report 6886300-4 (Version None)
Quarter: 2010Q3

REPORT INFORMATION
  Report Type: 
  Country: None (occurrence: None)
  Receive Date: 20100729
  Receipt Date: 20090410
  Transmission Date: 20110219
  Serious: Yes (Other)
  Sender: FDA-Public Use
  Company Number: US-PFIZER INC-2009177034

PATIENT
  Age: 45 Year

DRUGS (2)
  1. CELEBREX [Suspect]
  2. PROPRANOLOL [Concomitant]

REACTIONS (1)
  - DEAFNESS [None]
